FAERS Safety Report 8852390 (Version 1)
Quarter: 2012Q4

REPORT INFORMATION
  Report Type: 
  Country: US (occurrence: US)
  Receive Date: 20121022
  Receipt Date: 20121022
  Transmission Date: 20130627
  Serious: Yes (Other)
  Sender: FDA-Public Use
  Company Number: US-PFIZER INC-HQWYE444927JUL04

PATIENT
  Age: 67 Year
  Sex: Female

DRUGS (20)
  1. PREMPRO [Suspect]
     Indication: HORMONE REPLACEMENT THERAPY
     Dosage: UNK
     Route: 048
  2. PREMARIN [Suspect]
     Indication: HORMONE REPLACEMENT THERAPY
     Dosage: 0.625 mg, UNK
     Route: 048
     Dates: start: 1985, end: 199708
  3. PREMARIN [Suspect]
     Dosage: 0.625 mg, UNK
     Route: 048
     Dates: start: 200105, end: 200208
  4. PREMARIN [Suspect]
     Dosage: 1.25 mg, UNK
     Route: 048
     Dates: start: 200205
  5. PROVERA [Suspect]
     Indication: HORMONE REPLACEMENT THERAPY
     Dosage: 2.5 mg, UNK
     Route: 048
     Dates: start: 1985, end: 199310
  6. PROVERA [Suspect]
     Dosage: 2.5 mg, UNK
     Route: 048
     Dates: start: 200004, end: 200007
  7. DEPO-PROVERA [Suspect]
     Indication: HORMONE REPLACEMENT THERAPY
     Dosage: 200 mg, UNK
     Dates: start: 199207, end: 199211
  8. MEDROXYPROGESTERONE ACETATE [Suspect]
     Indication: HORMONE REPLACEMENT THERAPY
     Dosage: 10 mg, UNK
     Route: 048
     Dates: start: 199406
  9. MEDROXYPROGESTERONE ACETATE [Suspect]
     Dosage: 2.5 mg, UNK
     Route: 048
     Dates: start: 199310, end: 200208
  10. ESTRADIOL [Suspect]
     Indication: HORMONE REPLACEMENT THERAPY
     Dosage: UNK
  11. ESTRACE [Suspect]
     Indication: HORMONE REPLACEMENT THERAPY
     Dosage: 1 mg, UNK
     Dates: start: 199711, end: 200102
  12. ATENOLOL [Concomitant]
     Dosage: UNK
     Dates: start: 199506
  13. NIFEDIPINE [Concomitant]
     Dosage: UNK
     Dates: start: 200010
  14. RELAFEN [Concomitant]
     Dosage: UNK
     Dates: start: 200201, end: 200212
  15. MEPROBAMATE [Concomitant]
     Dosage: UNK
     Dates: start: 199401, end: 200307
  16. ALPRAZOLAM [Concomitant]
     Dosage: UNK
     Dates: start: 199411, end: 200212
  17. ALLEGRA [Concomitant]
     Dosage: UNK
     Dates: start: 199211, end: 200212
  18. HYDROCODONE [Concomitant]
     Dosage: UNK
     Dates: start: 199701, end: 200212
  19. LEVOTHROID [Concomitant]
     Dosage: UNK
     Dates: start: 200201, end: 200406
  20. XANAX [Concomitant]
     Dosage: UNK
     Dates: start: 199205, end: 200310

REACTIONS (1)
  - Invasive ductal breast carcinoma [Unknown]
